FAERS Safety Report 7283263-7 (Version None)
Quarter: 2011Q1

REPORT INFORMATION
  Report Type: 
  Country: None (occurrence: None)
  Receive Date: 20110209
  Receipt Date: 20110131
  Transmission Date: 20110831
  Serious: Yes (Other)
  Sender: FDA-Public Use
  Company Number: PHHY2010CA24385

PATIENT
  Sex: Female

DRUGS (11)
  1. TYLENOL EXTRA STRENGTH [Concomitant]
  2. LORAZEPAM [Concomitant]
     Dosage: AS NEEDED, 1 DROP IN EACH EYE DAILY
  3. GRAVOL TAB [Concomitant]
     Dosage: AS NEEDED
  4. EXJADE [Suspect]
     Indication: MYELODYSPLASTIC SYNDROME
     Dosage: 875 MG, QD
     Route: 048
     Dates: start: 20090301
  5. COZAAR [Concomitant]
     Dosage: 100 MG
  6. ASPIRIN [Concomitant]
     Dosage: ONE TABLET, OD
     Route: 048
  7. SENOKOT [Concomitant]
     Dosage: AS NEEDED
  8. WATER PILLS [Concomitant]
     Dosage: 25 MG, EVERY OTHER DAY
     Route: 048
  9. EXJADE [Suspect]
     Dosage: 500 MG, QOD
     Route: 048
  10. METOPROLOL [Concomitant]
     Dosage: 25 MG HALF TABLET, BID
     Route: 048
  11. EPREX [Concomitant]
     Dosage: DAILY

REACTIONS (4)
  - BLOOD CREATININE INCREASED [None]
  - NAUSEA [None]
  - DIARRHOEA [None]
  - ATRIAL FIBRILLATION [None]
